FAERS Safety Report 12889976 (Version 1)
Quarter: 2016Q4

REPORT INFORMATION
  Report Type: Spontaneous
  Country: FR (occurrence: FR)
  Receive Date: 20161027
  Receipt Date: 20161027
  Transmission Date: 20170207
  Serious: Yes (Other)
  Sender: FDA-Public Use
  Company Number: FR-FRESENIUS KABI-FK201608213

PATIENT
  Age: 56 Year
  Sex: Female

DRUGS (2)
  1. G-CSF [Concomitant]
     Active Substance: GRANULOCYTE COLONY-STIMULATING FACTOR NOS
     Indication: PROPHYLAXIS
  2. IDARUBICIN HYDROCHLORIDE (MANUFACTURER UNKNOWN) [Suspect]
     Active Substance: IDARUBICIN HYDROCHLORIDE
     Indication: GLIOBLASTOMA
     Route: 013

REACTIONS (7)
  - Pupils unequal [Unknown]
  - Hemiparesis [Unknown]
  - Cognitive disorder [Unknown]
  - Thrombocytopenia [Unknown]
  - Drug ineffective [Unknown]
  - Anaemia [Unknown]
  - Pancytopenia [Unknown]
